FAERS Safety Report 18379824 (Version 1)
Quarter: 2020Q4

REPORT INFORMATION
  Report Type: Spontaneous
  Country: FR (occurrence: FR)
  Receive Date: 20201014
  Receipt Date: 20201014
  Transmission Date: 20210114
  Serious: Yes (Hospitalization)
  Sender: FDA-Public Use
  Company Number: FR-TEVA-2020-FR-1837231

PATIENT
  Age: 56 Year
  Sex: Male
  Weight: 74 kg

DRUGS (7)
  1. INDAPAMIDE. [Suspect]
     Active Substance: INDAPAMIDE
     Indication: HYPERTENSION
     Dosage: 1.5 MG
     Route: 048
     Dates: end: 201810
  2. METFORMINE [Concomitant]
     Active Substance: METFORMIN HYDROCHLORIDE
  3. OMEPRAZOLE. [Concomitant]
     Active Substance: OMEPRAZOLE
  4. BISOPROLOL (HEMIFUMARATE DE) [Concomitant]
     Active Substance: BISOPROLOL FUMARATE
  5. COVERSYL 5 MG, COMPRIME PELLICULE SECABLE [Concomitant]
     Active Substance: PERINDOPRIL ARGININE
  6. ATORVASTATINE [Concomitant]
     Active Substance: ATORVASTATIN
  7. KARDEGIC [Concomitant]
     Active Substance: ASPIRIN DL-LYSINE
     Dosage: IN SACHET

REACTIONS (3)
  - Hyponatraemia [Recovered/Resolved]
  - Torsade de pointes [Recovered/Resolved]
  - Hypokalaemia [Recovered/Resolved]

NARRATIVE: CASE EVENT DATE: 20181009
